FAERS Safety Report 19107086 (Version 1)
Quarter: 2021Q2

REPORT INFORMATION
  Report Type: Spontaneous
  Country: US (occurrence: US)
  Receive Date: 20210408
  Receipt Date: 20210408
  Transmission Date: 20210717
  Serious: No
  Sender: FDA-Public Use
  Company Number: US-009507513-2103USA003667

PATIENT
  Age: 58 Year
  Sex: Female

DRUGS (1)
  1. KEYTRUDA [Suspect]
     Active Substance: PEMBROLIZUMAB
     Indication: LUNG CANCER METASTATIC
     Dosage: 200 MILLIGRAM, Q3W
     Route: 042
     Dates: start: 20201231, end: 20210309

REACTIONS (6)
  - Vision blurred [Recovered/Resolved]
  - Eye pruritus [Unknown]
  - Cataract nuclear [Unknown]
  - Keratomileusis [Unknown]
  - Dermatochalasis [Unknown]
  - Dry eye [Unknown]

NARRATIVE: CASE EVENT DATE: 20210309
